FAERS Safety Report 23436802 (Version 1)
Quarter: 2024Q1

REPORT INFORMATION
  Report Type: Spontaneous
  Country: GB (occurrence: GB)
  Receive Date: 20240124
  Receipt Date: 20240124
  Transmission Date: 20240410
  Serious: Yes (Other)
  Sender: FDA-Public Use
  Company Number: GB-MHRA-TPP12350701C8172929YC1704992941795

PATIENT
  Age: 58 Year
  Sex: Female
  Weight: 70 kg

DRUGS (9)
  1. ALENDRONIC ACID [Suspect]
     Active Substance: ALENDRONIC ACID
     Indication: Product used for unknown indication
     Dosage: 70 MILLIGRAM, EVERY WEEK (SWALLOW ONE TABLET WHOLE ONCE WEEKLY, FIRST THI)
     Route: 065
     Dates: start: 20231215
  2. AMLODIPINE [Concomitant]
     Active Substance: AMLODIPINE BESYLATE
     Indication: Hypertension
     Dosage: 1 DOSAGE FORM, ONCE A DAY
     Route: 065
     Dates: start: 20230413
  3. Cetraben [Concomitant]
     Indication: Product used for unknown indication
     Dosage: UNK (TO BE USED AS A SOAP SUBSTITUTE AND EMOLLIENT )
     Route: 065
     Dates: start: 20230413
  4. CODEINE PHOSPHATE [Concomitant]
     Active Substance: CODEINE PHOSPHATE
     Indication: Analgesic therapy
     Dosage: 1 DOSAGE FORM (UPTO FOUR TIMES DAILY)
     Route: 065
     Dates: start: 20230413
  5. KELHALE [Concomitant]
     Indication: Product used for unknown indication
     Dosage: 2 DOSAGE FORM, TWO TIMES A DAY
     Route: 055
     Dates: start: 20230413
  6. MIRTAZAPINE [Concomitant]
     Active Substance: MIRTAZAPINE
     Indication: Product used for unknown indication
     Dosage: 1 DOSAGE FORM, ONCE A DAY
     Route: 065
     Dates: start: 20230413
  7. OMEPRAZOLE [Concomitant]
     Active Substance: OMEPRAZOLE
     Indication: Product used for unknown indication
     Dosage: 1 DOSAGE FORM, ONCE A DAY
     Route: 065
     Dates: start: 20230413
  8. ALBUTEROL [Concomitant]
     Active Substance: ALBUTEROL
     Indication: Product used for unknown indication
     Dosage: UNK (INHALE 2 DOSES AS NEEDED)
     Route: 055
     Dates: start: 20230413
  9. THEICAL D3 [Concomitant]
     Indication: Product used for unknown indication
     Dosage: 1 DOSAGE FORM, ONCE A DAY
     Route: 065
     Dates: start: 20231215

REACTIONS (1)
  - Swelling face [Recovered/Resolved]
